FAERS Safety Report 14580397 (Version 4)
Quarter: 2020Q2

REPORT INFORMATION
  Report Type: Spontaneous
  Country: JP (occurrence: JP)
  Receive Date: 20180228
  Receipt Date: 20200514
  Transmission Date: 20200713
  Serious: Yes (Other)
  Sender: FDA-Public Use
  Company Number: JP-UCBSA-2018007487

PATIENT
  Age: 7 Year
  Sex: Male

DRUGS (14)
  1. E KEPPRA [Suspect]
     Active Substance: LEVETIRACETAM
     Dosage: 1000MG/DAY?43MG/KG/DAY)
     Route: 048
  2. DEPAKENE [Suspect]
     Active Substance: VALPROIC ACID
     Dosage: 600 MG/DAY (20 MG/KG/DAY)
  3. E KEPPRA [Suspect]
     Active Substance: LEVETIRACETAM
     Dosage: 1250MG/DAY?54MG/KG/DAY)
     Route: 048
  4. E KEPPRA [Suspect]
     Active Substance: LEVETIRACETAM
     Dosage: 750MG/DAY?32MG/KG/DAY)
     Route: 048
  5. E KEPPRA [Suspect]
     Active Substance: LEVETIRACETAM
     Dosage: 1000MG/DAY?44MG/KG/DAY)
     Route: 048
  6. CARBAMAZEPINE. [Suspect]
     Active Substance: CARBAMAZEPINE
     Indication: SEIZURE
     Dosage: UNKNOWN DOSE
  7. E KEPPRA [Suspect]
     Active Substance: LEVETIRACETAM
     Indication: FRONTAL LOBE EPILEPSY
     Dosage: 250MG/DAY?11MG/KG/DAY)
     Route: 048
     Dates: start: 20171016, end: 20171119
  8. LAMICTAL [Suspect]
     Active Substance: LAMOTRIGINE
     Indication: SEIZURE
     Dosage: UNK
  9. E KEPPRA [Suspect]
     Active Substance: LEVETIRACETAM
     Indication: SEIZURE
     Dosage: 500MG/DAY, 22MG/KG/DAY
     Route: 048
  10. CARBAMAZEPINE. [Suspect]
     Active Substance: CARBAMAZEPINE
     Dosage: 500 MILLIGRAM PER DAY (21 MG/KG/DAY)
  11. DEPAKENE [Suspect]
     Active Substance: VALPROIC ACID
     Indication: SEIZURE
     Dosage: UNKNOWN DOSE
     Route: 048
  12. E KEPPRA [Suspect]
     Active Substance: LEVETIRACETAM
     Dosage: 1500 MILLIGRAM ?66MG/KG/DAY)
  13. E KEPPRA [Suspect]
     Active Substance: LEVETIRACETAM
     Dosage: 500MG /DAY?22MG/KG/DAY)
     Route: 048
  14. LAMICTAL [Suspect]
     Active Substance: LAMOTRIGINE
     Dosage: 32 MILLIGRAM PER DAY (1.1 MG/KG/DAY)
     Route: 048

REACTIONS (2)
  - Seizure [Recovered/Resolved]
  - Multiple-drug resistance [Unknown]

NARRATIVE: CASE EVENT DATE: 20171021
